FAERS Safety Report 8763152 (Version 2)
Quarter: 2012Q4

REPORT INFORMATION
  Report Type: 
  Country: US (occurrence: US)
  Receive Date: 20120831
  Receipt Date: 20120921
  Transmission Date: 20130627
  Serious: No
  Sender: FDA-Public Use
  Company Number: US-PFIZER INC-2012211926

PATIENT
  Age: 55 Year
  Sex: Female
  Weight: 79.37 kg

DRUGS (6)
  1. GABAPENTIN [Suspect]
     Indication: MYALGIA
     Dosage: three capsule of 300mg, 1x/day
     Route: 048
  2. GABAPENTIN [Suspect]
     Dosage: UNK
     Route: 048
  3. HYDROCODONE [Concomitant]
     Indication: PAIN
     Dosage: UNK
  4. SIMVASTATIN [Concomitant]
     Dosage: 20 mg, 1x/day
  5. DIVALPROEX [Concomitant]
     Dosage: 500 mg, 5x/day
  6. BUSPIRONE [Concomitant]
     Dosage: 30 mg, 2x/day

REACTIONS (1)
  - Blood calcium increased [Unknown]
